FAERS Safety Report 13404362 (Version 2)
Quarter: 2017Q2

REPORT INFORMATION
  Report Type: Report from Study
  Country: IT (occurrence: IT)
  Receive Date: 20170405
  Receipt Date: 20170412
  Transmission Date: 20170830
  Serious: Yes (Hospitalization, Other)
  Sender: FDA-Public Use
  Company Number: IT-MYLANLABS-2017M1020298

PATIENT

DRUGS (1)
  1. CLOPIDOGREL [Suspect]
     Active Substance: CLOPIDOGREL BISULFATE
     Indication: PRODUCT USED FOR UNKNOWN INDICATION
     Dosage: 75 MG, QD
     Route: 048

REACTIONS (2)
  - Cerebral haemorrhage [Unknown]
  - Sopor [Unknown]

NARRATIVE: CASE EVENT DATE: 20170118
